FAERS Safety Report 7501409-X (Version None)
Quarter: 2011Q2

REPORT INFORMATION
  Report Type: 
  Country: None (occurrence: None)
  Receive Date: 20110524
  Receipt Date: 20110518
  Transmission Date: 20111010
  Serious: Yes (Hospitalization, Disabling)
  Sender: FDA-Public Use
  Company Number: JP-PFIZER INC-2011081937

PATIENT
  Age: 33 Year
  Sex: Female
  Weight: 56.1 kg

DRUGS (5)
  1. MEICELIN [Concomitant]
     Dosage: 1 G, 2X/DAY
     Route: 042
     Dates: start: 20110402, end: 20110403
  2. NOVASTAN [Concomitant]
     Indication: ANTICOAGULANT THERAPY
     Dosage: 60 MG, 1X/DAY
     Route: 042
     Dates: start: 20110408, end: 20110413
  3. ISEPACIN [Concomitant]
     Dosage: 200 MG, 2X/DAY
     Route: 042
     Dates: start: 20110403, end: 20110403
  4. UNASYN [Suspect]
     Indication: INFECTION PROPHYLAXIS
     Dosage: 1.5 G, 3X/DAY
     Route: 042
     Dates: start: 20110405, end: 20110411
  5. FOY [Concomitant]
     Indication: DISSEMINATED INTRAVASCULAR COAGULATION
     Dosage: 1800 MG, 1X/DAY
     Route: 042
     Dates: start: 20110409, end: 20110420

REACTIONS (1)
  - HAEMOLYTIC ANAEMIA [None]
